FAERS Safety Report 5905801-6 (Version None)
Quarter: 2008Q4

REPORT INFORMATION
  Report Type: 
  Country: None (occurrence: None)
  Receive Date: 20081002
  Receipt Date: 20080926
  Transmission Date: 20090506
  Serious: Yes (Other)
  Sender: FDA-Public Use
  Company Number: B0512158A

PATIENT
  Age: 43 Year
  Sex: Female

DRUGS (6)
  1. PAXIL [Suspect]
     Indication: DEPRESSION
     Route: 048
  2. LEXOTAN [Concomitant]
     Route: 048
  3. HALCION [Concomitant]
     Route: 048
  4. ROHYPNOL [Concomitant]
     Route: 065
  5. TETRAMIDE [Concomitant]
     Route: 048
  6. SOLANAX [Concomitant]

REACTIONS (7)
  - ADRENAL CARCINOMA [None]
  - BENIGN NEOPLASM [None]
  - BLOOD CHOLESTEROL INCREASED [None]
  - BODY MASS INDEX INCREASED [None]
  - HEPATIC STEATOSIS [None]
  - PANNICULITIS [None]
  - WEIGHT INCREASED [None]
